FAERS Safety Report 15284455 (Version 1)
Quarter: 2018Q3

REPORT INFORMATION
  Report Type: Spontaneous
  Country: TH (occurrence: TH)
  Receive Date: 20180816
  Receipt Date: 20180816
  Transmission Date: 20181010
  Serious: Yes (Hospitalization, Other)
  Sender: FDA-Public Use
  Company Number: TH-MYLANLABS-2018M1061416

PATIENT
  Age: 40 Year
  Sex: Male

DRUGS (5)
  1. QUETIAPINE. [Suspect]
     Active Substance: QUETIAPINE
     Indication: IRRITABILITY
     Dosage: 25 MG, QD, AT BEDTIME
     Route: 065
  2. RISPERIDONE. [Concomitant]
     Active Substance: RISPERIDONE
     Indication: IRRITABILITY
     Dosage: 2 MG, QD, AT BEDTIME
     Route: 065
  3. CETIRIZINE [Suspect]
     Active Substance: CETIRIZINE HYDROCHLORIDE
     Indication: STEVENS-JOHNSON SYNDROME
     Route: 065
  4. CETIRIZINE [Suspect]
     Active Substance: CETIRIZINE HYDROCHLORIDE
     Indication: TOXIC EPIDERMAL NECROLYSIS
  5. CARBAMAZEPINE. [Suspect]
     Active Substance: CARBAMAZEPINE
     Indication: IRRITABILITY
     Dosage: 200 MG, BID
     Route: 065

REACTIONS (3)
  - Stevens-Johnson syndrome [Recovering/Resolving]
  - Drug ineffective [Unknown]
  - Toxic epidermal necrolysis [Recovering/Resolving]
